FAERS Safety Report 18681659 (Version 1)
Quarter: 2020Q4

REPORT INFORMATION
  Report Type: Spontaneous
  Country: JP (occurrence: JP)
  Receive Date: 20201230
  Receipt Date: 20201230
  Transmission Date: 20210114
  Serious: Yes (Other)
  Sender: FDA-Public Use
  Company Number: NVSJ2020JP014241

PATIENT
  Sex: Male

DRUGS (1)
  1. GLIVEC [Suspect]
     Active Substance: IMATINIB MESYLATE
     Indication: GASTROINTESTINAL SUBMUCOSAL TUMOUR
     Dosage: ADMINISTERED FOR 12 YEARS
     Route: 048

REACTIONS (2)
  - Second primary malignancy [Unknown]
  - Prostate cancer [Unknown]
